FAERS Safety Report 11785464 (Version 1)
Quarter: 2015Q4

REPORT INFORMATION
  Report Type: Spontaneous
  Country: ID (occurrence: ID)
  Receive Date: 20151130
  Receipt Date: 20151130
  Transmission Date: 20160305
  Serious: Yes (Other)
  Sender: FDA-Public Use
  Company Number: ID-BAYER-2015-473143

PATIENT
  Sex: Female

DRUGS (3)
  1. AMLODIPINE [Concomitant]
     Active Substance: AMLODIPINE BESYLATE
     Indication: HYPERTENSION
  2. STIVARGA [Suspect]
     Active Substance: REGORAFENIB
     Indication: COLORECTAL CANCER METASTATIC
     Dosage: 160 MG DAILY DOSE 3 WEEKS ON AND 1 WEEK OFF
     Route: 048
     Dates: start: 20151025
  3. IRBESARTAN. [Concomitant]
     Active Substance: IRBESARTAN
     Indication: HYPERTENSION

REACTIONS (12)
  - Alanine aminotransferase increased [None]
  - Onychalgia [None]
  - Carcinoembryonic antigen increased [None]
  - Gait disturbance [None]
  - Muscle spasms [None]
  - Blood pressure increased [None]
  - Cough [None]
  - Pyrexia [None]
  - Aspartate aminotransferase increased [None]
  - Dyspnoea [None]
  - Palmar-plantar erythrodysaesthesia syndrome [None]
  - Thrombocytopenia [None]

NARRATIVE: CASE EVENT DATE: 20151113
